FAERS Safety Report 6028502-5 (Version None)
Quarter: 2008Q4

REPORT INFORMATION
  Report Type: 
  Country: None (occurrence: None)
  Receive Date: 20081222
  Receipt Date: 20081024
  Transmission Date: 20090506
  Serious: No
  Sender: FDA-Public Use
  Company Number: US-WYE-H06551008

PATIENT
  Age: 58 Year
  Sex: Male
  Weight: 71.73 kg

DRUGS (3)
  1. PRISTIQ [Suspect]
     Indication: DEPRESSION
     Dosage: 50 MG 1X PER 1 DAY, ORAL
     Route: 048
     Dates: start: 20081001
  2. TRAMADOL HCL [Concomitant]
  3. SUPER B (AMINO ACIDS NOS/MINERALS NOS/VITAMINS NOS) [Concomitant]

REACTIONS (3)
  - RASH PAPULAR [None]
  - RASH PRURITIC [None]
  - SECRETION DISCHARGE [None]
